FAERS Safety Report 9787581 (Version 1)
Quarter: 2013Q4

REPORT INFORMATION
  Report Type: Spontaneous
  Country: AR (occurrence: AR)
  Receive Date: 20131230
  Receipt Date: 20131230
  Transmission Date: 20140711
  Serious: Yes (Hospitalization)
  Sender: FDA-Public Use
  Company Number: AR-009507513-1312ARG010575

PATIENT
  Age: 64 Year
  Sex: Male

DRUGS (5)
  1. BOCEPREVIR [Suspect]
     Indication: CHRONIC HEPATITIS C
     Dosage: 800 MG, TID
  2. PEGINTERFERON ALFA-2A [Suspect]
     Indication: CHRONIC HEPATITIS C
     Dosage: 180 MICROGRAM, UNK
  3. RIBAVIRIN [Suspect]
     Indication: CHRONIC HEPATITIS C
     Dosage: 1,200 MG/DAY
  4. PROPRANOLOL HYDROCHLORIDE [Concomitant]
     Indication: HAEMORRHAGE PROPHYLAXIS
     Dosage: 20 MG, TID
  5. PROPRANOLOL HYDROCHLORIDE [Concomitant]
     Dosage: REINITIATED 2 WEEKS AFTER THE LAST SYNCOPE

REACTIONS (1)
  - Syncope [Recovered/Resolved]
